FAERS Safety Report 7867399-5 (Version None)
Quarter: 2011Q4

REPORT INFORMATION
  Report Type: 
  Country: None (occurrence: None)
  Receive Date: 20111028
  Receipt Date: 20111019
  Transmission Date: 20120403
  Serious: Yes (Other)
  Sender: FDA-Public Use
  Company Number: FR-MERCK-1110USA03293

PATIENT
  Age: 48 Year
  Sex: Female

DRUGS (17)
  1. EMEND [Suspect]
     Indication: PROPHYLAXIS OF NAUSEA AND VOMITING
     Route: 048
     Dates: start: 20110827, end: 20110827
  2. EMEND [Suspect]
     Route: 048
     Dates: start: 20110828
  3. DEXAMETHASONE [Suspect]
     Route: 048
     Dates: start: 20110903, end: 20110904
  4. VANCOMYCIN [Suspect]
     Route: 041
     Dates: start: 20110902, end: 20110904
  5. VANCOMYCIN [Suspect]
     Route: 041
     Dates: start: 20110905, end: 20110909
  6. AMBISOME [Suspect]
     Indication: ANTIFUNGAL PROPHYLAXIS
     Route: 041
     Dates: start: 20110903, end: 20110909
  7. VALACYCLOVIR HYDROCHLORIDE [Suspect]
     Route: 048
     Dates: start: 20110820
  8. DEXAMETHASONE [Suspect]
     Indication: ACUTE LYMPHOCYTIC LEUKAEMIA
     Route: 048
     Dates: start: 20110827, end: 20110828
  9. VINCRISTINE SULFATE [Suspect]
     Indication: ACUTE LYMPHOCYTIC LEUKAEMIA
     Route: 041
     Dates: start: 20110827, end: 20110903
  10. GAVISCON ANTACID TABLETS [Concomitant]
     Route: 048
     Dates: start: 20110829, end: 20110906
  11. LUTENYL [Concomitant]
     Route: 048
  12. ALUMINUM HYDROXIDE AND MAGNESIUM TRISILICATE [Concomitant]
     Route: 048
     Dates: start: 20110904
  13. OMEPRAZOLE [Suspect]
     Route: 048
     Dates: start: 20110829
  14. PIPERACILLIN AND TAZOBACTAM [Suspect]
     Route: 041
     Dates: start: 20110902
  15. IMOVANE [Suspect]
     Route: 048
     Dates: start: 20110826
  16. ESCITALOPRAM OXALATE [Concomitant]
     Indication: DEPRESSION
     Route: 048
     Dates: end: 20110910
  17. GLEEVEC [Suspect]
     Indication: ACUTE LYMPHOCYTIC LEUKAEMIA
     Route: 048
     Dates: start: 20110827

REACTIONS (1)
  - RENAL FAILURE [None]
